FAERS Safety Report 25499157 (Version 1)
Quarter: 2025Q2

REPORT INFORMATION
  Report Type: Spontaneous
  Country: US (occurrence: None)
  Receive Date: 20250630
  Receipt Date: 20250630
  Transmission Date: 20250717
  Serious: Yes (Hospitalization)
  Sender: FDA-CTU
  Company Number: None

PATIENT
  Age: 63 Year
  Sex: Male

DRUGS (11)
  1. DUPIXENT [Suspect]
     Active Substance: DUPILUMAB
     Indication: Asthma
     Dosage: INJECT 1 PEN (300 MG) UNDER THE SKIN (SUBCUTANEOUS INJECTION) EVERY FOURTEEN DAYS
     Route: 058
     Dates: start: 20231222
  2. ALBUTEROL POW SULFATE [Concomitant]
  3. ALTERA [Concomitant]
  4. BACLOFEN [Concomitant]
     Active Substance: BACLOFEN
  5. CAYSTON [Concomitant]
     Active Substance: AZTREONAM
  6. CENTRUM SILV ADULT 50 [Concomitant]
  7. FINASTERIDE [Concomitant]
     Active Substance: FINASTERIDE
  8. HUMALOG [Concomitant]
     Active Substance: INSULIN LISPRO
  9. KEPPRA [Concomitant]
     Active Substance: LEVETIRACETAM
  10. LANTUS [Concomitant]
     Active Substance: INSULIN GLARGINE
  11. LEVOTHYROXINE [Concomitant]
     Active Substance: LEVOTHYROXINE

REACTIONS (2)
  - Therapy non-responder [None]
  - Carbon dioxide increased [None]

NARRATIVE: CASE EVENT DATE: 20250601
